FAERS Safety Report 12614179 (Version 1)
Quarter: 2016Q3

REPORT INFORMATION
  Report Type: Spontaneous
  Country: FR (occurrence: FR)
  Receive Date: 20160802
  Receipt Date: 20160802
  Transmission Date: 20161109
  Serious: Yes (Hospitalization, Other)
  Sender: FDA-Public Use
  Company Number: FR-PFIZER INC-2016365530

PATIENT
  Age: 80 Year
  Sex: Male

DRUGS (11)
  1. SYMBICORT [Concomitant]
     Active Substance: BUDESONIDE\FORMOTEROL FUMARATE DIHYDRATE
     Dosage: UNK
  2. PROCORALAN [Concomitant]
     Active Substance: IVABRADINE
     Dosage: UNK
  3. LASILIX [Concomitant]
     Active Substance: FUROSEMIDE
     Dosage: UNK
  4. COTRIATEC [Concomitant]
     Active Substance: HYDROCHLOROTHIAZIDE\RAMIPRIL
     Dosage: UNK
  5. VENTOLINE [Concomitant]
     Active Substance: ALBUTEROL
     Dosage: UNK
  6. METFORMIN HYDROCHLORIDE. [Concomitant]
     Active Substance: METFORMIN HYDROCHLORIDE
     Dosage: UNK
  7. PREVISCAN [Concomitant]
     Active Substance: FLUINDIONE
     Dosage: UNK
  8. CORDARONE [Suspect]
     Active Substance: AMIODARONE HYDROCHLORIDE
     Indication: ARRHYTHMIA SUPRAVENTRICULAR
     Dosage: 100 MG, DAILY
     Route: 048
     Dates: start: 201204, end: 201508
  9. TAHOR [Concomitant]
     Active Substance: ATORVASTATIN CALCIUM
     Dosage: UNK
  10. TIMOFEROL [Concomitant]
     Active Substance: ASCORBIC ACID\FERROUS SULFATE
     Dosage: UNK
  11. LEVEMIR [Concomitant]
     Active Substance: INSULIN DETEMIR
     Dosage: UNK

REACTIONS (5)
  - Asthmatic crisis [Unknown]
  - Pulmonary alveolar haemorrhage [Recovering/Resolving]
  - Aspergillus infection [Unknown]
  - Bronchitis bacterial [Unknown]
  - Interstitial lung disease [Recovered/Resolved]

NARRATIVE: CASE EVENT DATE: 201507
